FAERS Safety Report 7499988-4 (Version None)
Quarter: 2011Q2

REPORT INFORMATION
  Report Type: 
  Country: None (occurrence: None)
  Receive Date: 20110524
  Receipt Date: 20110509
  Transmission Date: 20111010
  Serious: No
  Sender: FDA-Public Use
  Company Number: US-B.I. PHARMACEUTICALS,INC./RIDGEFIELD-2011-BP-12642BP

PATIENT
  Age: 81 Year
  Sex: Female

DRUGS (11)
  1. LISINOPRIL [Concomitant]
     Indication: HYPERTENSION
     Dosage: 30 MG
     Route: 048
  2. MULTI-VITAMIN [Concomitant]
     Indication: PROPHYLAXIS
     Route: 048
  3. ASPIRIN [Concomitant]
     Indication: PROPHYLAXIS
     Dosage: 81 MG
     Route: 048
  4. GLUCOSAMINE [Concomitant]
     Indication: ARTHRALGIA
     Route: 048
  5. PRADAXA [Suspect]
     Indication: ATRIAL FIBRILLATION
     Dosage: 300 MG
     Route: 048
     Dates: start: 20110304
  6. CARVEDILOL [Concomitant]
     Indication: HYPERTENSION
     Dosage: 6.25 MG
     Route: 048
  7. CALCIUM CARBONATE [Concomitant]
     Indication: PROPHYLAXIS
     Dosage: 500 MG
     Route: 048
  8. VIT C [Concomitant]
     Indication: PROPHYLAXIS
     Dosage: 500 MG
     Route: 048
  9. LIPITOR [Concomitant]
     Indication: BLOOD CHOLESTEROL INCREASED
     Dosage: 20 MG
     Route: 048
  10. VIT E [Concomitant]
     Indication: PROPHYLAXIS
     Dosage: 400 U
     Route: 048
  11. VIT D [Concomitant]
     Indication: PROPHYLAXIS
     Dosage: 1000 U
     Route: 048

REACTIONS (2)
  - PAIN IN EXTREMITY [None]
  - FATIGUE [None]
